FAERS Safety Report 8120241-X (Version None)
Quarter: 2012Q1

REPORT INFORMATION
  Report Type: 
  Country: None (occurrence: None)
  Receive Date: 20120203
  Receipt Date: 20120125
  Transmission Date: 20120608
  Serious: Yes (Other)
  Sender: FDA-Public Use
  Company Number: AUR-APL-2012-00736

PATIENT
  Age: 18 Year
  Sex: Female
  Weight: 79.36 kg

DRUGS (1)
  1. AMOXICILLIN [Suspect]
     Indication: STAPHYLOCOCCAL PHARYNGITIS
     Dosage: 2 IN 1 D
     Dates: start: 20120121, end: 20120124

REACTIONS (2)
  - VAGINAL DISCHARGE [None]
  - HAEMATOCHEZIA [None]
